FAERS Safety Report 20733488 (Version 2)
Quarter: 2022Q2

REPORT INFORMATION
  Report Type: Report from Study
  Country: BE (occurrence: BE)
  Receive Date: 20220421
  Receipt Date: 20220527
  Transmission Date: 20220721
  Serious: Yes (Death, Life-Threatening, Hospitalization, Other)
  Sender: FDA-Public Use
  Company Number: BE-GRINDPROD-2022001830

PATIENT
  Age: 84 Year
  Sex: Female
  Weight: 54 kg

DRUGS (19)
  1. LENALIDOMIDE [Suspect]
     Active Substance: LENALIDOMIDE
     Indication: Lymphoma
     Dosage: 10 MILLIGRAM (DAYS 1 TO 21 OF EVERY CYCLE X 12 CYCLES
     Route: 048
     Dates: start: 20210902
  2. LENALIDOMIDE [Suspect]
     Active Substance: LENALIDOMIDE
     Route: 048
     Dates: end: 20210917
  3. LENALIDOMIDE [Suspect]
     Active Substance: LENALIDOMIDE
     Route: 048
     Dates: start: 20210923, end: 20211014
  4. RITUXIMAB [Suspect]
     Active Substance: RITUXIMAB
     Indication: Lymphoma
     Dosage: 375 MILLIEQUIVALENT PER SQUARE METRE; INTRAVENOUS (DAYS 1,8,15,22 OF CYCLE 1 AND DAY 1 OF CYCLES 2-5
     Dates: start: 20210902, end: 20210916
  5. RITUXIMAB [Suspect]
     Active Substance: RITUXIMAB
     Dosage: 75 MILLIEQUIVALENT PER SQUARE METRE; INTRAVENOUS (DAYS 1,8,15,22 OF CYCLE 1 AND DAY 1 OF CYCLES 2-5)
     Route: 042
     Dates: start: 20210923
  6. LANOXIN [Concomitant]
     Active Substance: DIGOXIN
     Indication: Product used for unknown indication
     Route: 065
     Dates: start: 20210803, end: 20210902
  7. XARELTO [Concomitant]
     Active Substance: RIVAROXABAN
     Indication: Product used for unknown indication
     Route: 065
     Dates: start: 20210803, end: 20210918
  8. ASPIRIN [Concomitant]
     Active Substance: ASPIRIN
     Indication: Product used for unknown indication
     Route: 065
     Dates: start: 20210803, end: 20211103
  9. MOXONIDINE [Concomitant]
     Active Substance: MOXONIDINE
     Indication: Product used for unknown indication
     Route: 065
     Dates: start: 20210803, end: 20211005
  10. FUROSEMIDE [Concomitant]
     Active Substance: FUROSEMIDE
     Indication: Product used for unknown indication
     Route: 065
     Dates: start: 20210803, end: 20211103
  11. FOLIC ACID [Concomitant]
     Active Substance: FOLIC ACID
     Indication: Product used for unknown indication
     Route: 065
     Dates: start: 20210804, end: 20211103
  12. CORDARONE [Concomitant]
     Active Substance: AMIODARONE HYDROCHLORIDE
     Indication: Product used for unknown indication
     Route: 065
     Dates: start: 20210831, end: 20210901
  13. STEOVIT FORTE [Concomitant]
     Indication: Product used for unknown indication
     Route: 065
     Dates: start: 20210902, end: 20211103
  14. POTASSIUM GLUCONATE [Concomitant]
     Active Substance: POTASSIUM GLUCONATE
     Indication: Product used for unknown indication
     Route: 065
     Dates: start: 20210622, end: 20210927
  15. SOLU-MEDROL [Concomitant]
     Active Substance: METHYLPREDNISOLONE SODIUM SUCCINATE
     Indication: Product used for unknown indication
     Route: 065
     Dates: start: 20210902, end: 20210902
  16. AMLODIPINE [Concomitant]
     Active Substance: AMLODIPINE BESYLATE
     Indication: Product used for unknown indication
     Route: 065
     Dates: start: 20210902, end: 20211005
  17. TRAMADOL HYDROCHLORIDE [Concomitant]
     Active Substance: TRAMADOL HYDROCHLORIDE
     Indication: Product used for unknown indication
     Route: 065
     Dates: start: 20210803, end: 20210917
  18. FELODIPINE\METOPROLOL SUCCINATE [Concomitant]
     Active Substance: FELODIPINE\METOPROLOL SUCCINATE
     Indication: Product used for unknown indication
     Route: 065
     Dates: start: 20210803, end: 20211005
  19. PANTOPRAZOLE [Concomitant]
     Active Substance: PANTOPRAZOLE
     Indication: Product used for unknown indication
     Route: 065
     Dates: start: 20210803, end: 20210930

REACTIONS (4)
  - Peripheral arterial occlusive disease [Recovering/Resolving]
  - Epilepsy [Fatal]
  - Rash [Not Recovered/Not Resolved]
  - Pneumonia [Recovered/Resolved]

NARRATIVE: CASE EVENT DATE: 20210916
